FAERS Safety Report 7037512-0 (Version None)
Quarter: 2010Q4

REPORT INFORMATION
  Report Type: 
  Country: None (occurrence: None)
  Receive Date: 20101011
  Receipt Date: 20100930
  Transmission Date: 20110411
  Serious: Yes (Other)
  Sender: FDA-Public Use
  Company Number: B0677034A

PATIENT
  Sex: Female

DRUGS (5)
  1. ZOVIRAX [Suspect]
     Dosage: 800MG FIVE TIMES PER DAY
     Dates: start: 20100526, end: 20100527
  2. ZOVIRAX [Suspect]
     Route: 042
     Dates: start: 20100527, end: 20100530
  3. VALACYCLOVIR HYDROCHLORIDE [Concomitant]
     Dosage: 1000MG PER DAY
     Route: 048
     Dates: start: 20100530, end: 20100531
  4. PERFALGAN [Concomitant]
     Route: 065
     Dates: start: 20100527, end: 20100529
  5. LYRICA [Concomitant]
     Route: 065
     Dates: start: 20100527, end: 20100529

REACTIONS (11)
  - ABDOMINAL PAIN UPPER [None]
  - CHILLS [None]
  - DEHYDRATION [None]
  - FEELING HOT [None]
  - FOOD INTOLERANCE [None]
  - HEADACHE [None]
  - HYPERHIDROSIS [None]
  - PELVIC PAIN [None]
  - RENAL FAILURE ACUTE [None]
  - RENAL TUBULAR DISORDER [None]
  - VOMITING [None]
